FAERS Safety Report 5390757-8 (Version None)
Quarter: 2007Q3

REPORT INFORMATION
  Report Type: 
  Country: None (occurrence: None)
  Receive Date: 20070716
  Receipt Date: 20051128
  Transmission Date: 20080115
  Serious: Yes (Disabling)
  Sender: FDA-Public Use
  Company Number: MPS1-10401

PATIENT
  Age: 6 Year
  Sex: Female
  Weight: 13.14 kg

DRUGS (6)
  1. ALDURAZYME [Suspect]
     Indication: MUCOPOLYSACCHARIDOSIS I
     Dosage: 1.2 MG/KG QOW;IV
     Route: 042
     Dates: start: 20050413
  2. BACTRIM [Concomitant]
  3. TYENOL [Concomitant]
  4. DIPIRONE [Concomitant]
  5. CHAMOMILE, FENNEL, MELISSA           (HERBAL) [Concomitant]
  6. TRANSPULMIN [Concomitant]

REACTIONS (4)
  - ABASIA [None]
  - DISEASE PROGRESSION [None]
  - HEART RATE INCREASED [None]
  - RESPIRATORY RATE INCREASED [None]
